FAERS Safety Report 10577985 (Version 2)
Quarter: 2015Q1

REPORT INFORMATION
  Report Type: Report from Study
  Country: JP (occurrence: JP)
  Receive Date: 20141112
  Receipt Date: 20150308
  Transmission Date: 20150720
  Serious: Yes (Other)
  Sender: FDA-Public Use
  Company Number: JP-MERCK-1411JPN004153

PATIENT
  Age: 48 Year
  Sex: Male
  Weight: 70 kg

DRUGS (10)
  1. RIBAVIRIN. [Suspect]
     Active Substance: RIBAVIRIN
     Indication: CHRONIC HEPATITIS C
     Dosage: 800 MG, 1 IN 1 DAY
     Route: 048
     Dates: start: 20140205, end: 20140827
  2. VOLTAREN [Concomitant]
     Active Substance: DICLOFENAC SODIUM
     Indication: PROPHYLAXIS
     Dosage: 25 MG, 1 IN 1 AS NECESSARY
     Route: 054
     Dates: start: 20140205
  3. SIMEPREVIR [Suspect]
     Active Substance: SIMEPREVIR
     Indication: CHRONIC HEPATITIS C
     Dosage: 100 MG, 1 IN 1 DAY
     Route: 048
     Dates: start: 20140205, end: 20140429
  4. PEGINTRON [Suspect]
     Active Substance: PEGINTERFERON ALFA-2B
     Indication: CHRONIC HEPATITIS C
     Dosage: 1.5 MICROGRAM PER KILOGRAM, 1 IN 1 WEEK
     Route: 058
     Dates: start: 20140205, end: 20140820
  5. LIPIDIL [Concomitant]
     Active Substance: FENOFIBRATE
     Indication: HYPERLIPIDAEMIA
     Dosage: 106.6 MG, 1 IN 1 DAY
     Route: 048
  6. MUCOSTA [Concomitant]
     Active Substance: REBAMIPIDE
     Indication: PROPHYLAXIS
     Dosage: PERORAL MEDICINE
     Route: 048
  7. LOXONIN [Concomitant]
     Active Substance: LOXOPROFEN SODIUM
     Indication: SPINAL OSTEOARTHRITIS
     Dosage: PERORAL MEDICINE
     Route: 048
  8. NEUROTROPIN [Concomitant]
     Active Substance: NEUROTROPIN
     Indication: SPINAL OSTEOARTHRITIS
     Dosage: ORGAN LYSATE, STANDARDIZED, PERORAL MEDICINE
     Route: 048
  9. JUZEN-TAIHO-TO [Concomitant]
     Active Substance: UNSPECIFIED INGREDIENT
     Indication: PROPHYLAXIS
     Dosage: 7.5 G, 1 IN 1 DAY
     Route: 048
     Dates: start: 20140205
  10. MARZULENE-S [Concomitant]
     Active Substance: SODIUM GUALENATE
     Indication: PROPHYLAXIS
     Dosage: 2 G, 1 IN 1 DAY
     Route: 048
     Dates: start: 20140205

REACTIONS (6)
  - Malaise [Recovered/Resolved]
  - Drug effect incomplete [Unknown]
  - Platelet count decreased [Recovered/Resolved]
  - White blood cell count decreased [Recovered/Resolved]
  - Drug effect incomplete [Unknown]
  - Pruritus generalised [Recovered/Resolved]

NARRATIVE: CASE EVENT DATE: 20140219
